FAERS Safety Report 24563757 (Version 2)
Quarter: 2025Q2

REPORT INFORMATION
  Report Type: Report from Study
  Country: KW (occurrence: KW)
  Receive Date: 20241030
  Receipt Date: 20250429
  Transmission Date: 20250716
  Serious: Yes (Other)
  Sender: JOHNSON AND JOHNSON
  Company Number: KW-JNJFOC-20241072447

PATIENT
  Age: 38 Year
  Sex: Male

DRUGS (1)
  1. SIMPONI [Suspect]
     Active Substance: GOLIMUMAB
     Indication: Ankylosing spondylitis
     Route: 058
     Dates: start: 20211004, end: 20240626

REACTIONS (3)
  - Pneumonia [Unknown]
  - Immunodeficiency [Unknown]
  - Ankylosing spondylitis [Unknown]
